FAERS Safety Report 15878319 (Version 1)
Quarter: 2019Q1

REPORT INFORMATION
  Report Type: Spontaneous
  Country: US (occurrence: US)
  Receive Date: 20190128
  Receipt Date: 20190128
  Transmission Date: 20190417
  Serious: No
  Sender: FDA-Public Use
  Company Number: US-PFIZER INC-2019035379

PATIENT
  Age: 52 Year
  Sex: Male
  Weight: 92.53 kg

DRUGS (2)
  1. LYRICA [Suspect]
     Active Substance: PREGABALIN
     Indication: NEUROPATHY PERIPHERAL
     Dosage: 100 MG, 3X/DAY
     Route: 048
  2. LYRICA [Suspect]
     Active Substance: PREGABALIN
     Dosage: 300 MG, 2X/DAY (ONE 300MG CAPSULE AT 8 IN THE MORNING AND ONE 300MG CAPSULE AT 8 AT NIGHT)
     Route: 048
     Dates: start: 2018

REACTIONS (1)
  - Visual acuity reduced [Unknown]
